FAERS Safety Report 15035978 (Version 1)
Quarter: 2018Q2

REPORT INFORMATION
  Report Type: Spontaneous
  Country: US (occurrence: US)
  Receive Date: 20180530
  Receipt Date: 20180530
  Transmission Date: 20180711
  Serious: No
  Sender: FDA-Public Use
  Company Number: None

PATIENT
  Age: 66 Year
  Sex: Female

DRUGS (1)
  1. IBRANCE [Suspect]
     Active Substance: PALBOCICLIB
     Indication: BREAST CANCER FEMALE
     Dosage: 30-MAY-2018 TO 30-JUL-2018
     Route: 048
     Dates: start: 20180530

REACTIONS (1)
  - Drug prescribing error [None]

NARRATIVE: CASE EVENT DATE: 20180530
